FAERS Safety Report 5241083-9 (Version None)
Quarter: 2007Q1

REPORT INFORMATION
  Report Type: 
  Country: None (occurrence: None)
  Receive Date: 20070214
  Receipt Date: 20070214
  Transmission Date: 20070707
  Serious: Yes (Hospitalization)
  Sender: FDA-Public Use
  Company Number: None

PATIENT
  Age: 84 Year
  Sex: Male

DRUGS (16)
  1. PHENYTOIN [Suspect]
     Indication: CONVULSION
     Dates: start: 20011201, end: 20061015
  2. ACETAMINOPHEN [Concomitant]
  3. CALCIUM [Concomitant]
  4. CAPSAICIN [Concomitant]
  5. CITALOPRAM HYDROBROMIDE [Concomitant]
  6. CLONAZEPAM [Concomitant]
  7. CLONIDINE [Concomitant]
  8. DARBEPOETIN [Concomitant]
  9. DOCUSATE [Concomitant]
  10. FELODIPINE [Concomitant]
  11. FERROUS SULFATE [Concomitant]
  12. FOSINOPRIL SODIUM [Concomitant]
  13. METOPROLOL SUCCINATE [Concomitant]
  14. PHENYTOIN [Concomitant]
  15. RISPERDAL [Concomitant]
  16. TRAVOPROST [Concomitant]

REACTIONS (2)
  - COORDINATION ABNORMAL [None]
  - DRUG LEVEL INCREASED [None]
